FAERS Safety Report 5152119-8 (Version None)
Quarter: 2006Q4

REPORT INFORMATION
  Report Type: 
  Country: None (occurrence: None)
  Receive Date: 20061116
  Receipt Date: 20061103
  Transmission Date: 20070319
  Serious: Yes (Hospitalization, Other)
  Sender: FDA-Public Use
  Company Number: PHBS2006TR17192

PATIENT
  Age: 38 Year
  Sex: Male

DRUGS (19)
  1. CYCLOSPORINE [Suspect]
     Indication: BONE MARROW TRANSPLANT
     Route: 065
  2. CYCLOSPORINE [Suspect]
     Dosage: 150 MG/D
     Route: 065
  3. METHOTREXATE [Concomitant]
  4. ETOPOSIDE [Concomitant]
     Dosage: 30 MG/KG/D
  5. CYCLOPHOSPHAMIDE [Concomitant]
     Dosage: 50 MG/KG X 2
  6. IRRADIATION [Concomitant]
     Dosage: 14 GY
  7. METHYLPREDNISOLONE [Concomitant]
     Indication: GRAFT VERSUS HOST DISEASE
  8. PREDNISONE TAB [Suspect]
     Indication: GRAFT VERSUS HOST DISEASE
     Dosage: 2 MG/KG/D
     Route: 048
     Dates: start: 19940601
  9. PREDNISONE TAB [Suspect]
     Dosage: 70 MG/D
     Route: 048
     Dates: start: 19940901, end: 19960201
  10. PREDNISONE TAB [Suspect]
     Dosage: 20 MG/D
     Route: 048
  11. PREDNISONE TAB [Suspect]
     Dosage: 100 MG/D
     Route: 048
  12. PREDNISONE TAB [Suspect]
     Dosage: 16 MG/D
  13. INH [Concomitant]
     Indication: PULMONARY TUBERCULOSIS
  14. RIFAMPICIN [Concomitant]
     Indication: PULMONARY TUBERCULOSIS
  15. PYRAZINAMIDE [Concomitant]
     Indication: PULMONARY TUBERCULOSIS
  16. MYCOPHENOLATE MOFETIL [Concomitant]
     Dosage: 1000 MG/D
     Dates: start: 19990601
  17. MYCOPHENOLATE MOFETIL [Concomitant]
     Dosage: 2000 MG/D
  18. MYCOPHENOLATE MOFETIL [Concomitant]
     Dosage: 1000 MG/D
  19. PIPERACILLIN W/TAZOBACTAM [Concomitant]
     Indication: PNEUMONIA

REACTIONS (24)
  - CARBON MONOXIDE DIFFUSING CAPACITY DECREASED [None]
  - CATARACT [None]
  - CATARACT OPERATION [None]
  - COUGH [None]
  - CYTOMEGALOVIRUS VIRAEMIA [None]
  - DRY EYE [None]
  - DYSPNOEA [None]
  - DYSPNOEA EXERTIONAL [None]
  - FEBRILE NEUTROPENIA [None]
  - GRAFT VERSUS HOST DISEASE [None]
  - HIP ARTHROPLASTY [None]
  - INTERSTITIAL LUNG DISEASE [None]
  - LUNG INFECTION PSEUDOMONAL [None]
  - LUNG INFILTRATION [None]
  - OSTEONECROSIS [None]
  - OXYGEN SATURATION DECREASED [None]
  - PNEUMONIA KLEBSIELLA [None]
  - PSEUDOMONAS INFECTION [None]
  - PULMONARY FUNCTION TEST ABNORMAL [None]
  - PULMONARY TUBERCULOSIS [None]
  - PYREXIA [None]
  - SINUSITIS [None]
  - SPUTUM CULTURE POSITIVE [None]
  - TUBERCULOSIS [None]
